FAERS Safety Report 5145231-0 (Version None)
Quarter: 2006Q4

REPORT INFORMATION
  Report Type: 
  Country: None (occurrence: None)
  Receive Date: 20061107
  Receipt Date: 20061023
  Transmission Date: 20070319
  Serious: Yes (Hospitalization)
  Sender: FDA-Public Use
  Company Number: US-ROCHE-468658

PATIENT
  Age: 65 Year
  Sex: Female
  Weight: 77.1 kg

DRUGS (5)
  1. BONIVA [Suspect]
     Indication: OSTEOPOROSIS
     Route: 048
     Dates: start: 20051015, end: 20051115
  2. TOPROL-XL [Concomitant]
     Indication: HYPERTENSION
     Route: 048
     Dates: start: 19970615
  3. NORVASC [Concomitant]
     Indication: HYPERTENSION
     Route: 048
     Dates: start: 19970615
  4. HUMALOG [Concomitant]
     Route: 065
     Dates: start: 19970615
  5. LANTUS [Concomitant]
     Route: 065
     Dates: start: 19970615

REACTIONS (2)
  - BLOOD SODIUM INCREASED [None]
  - CARDIAC FAILURE CONGESTIVE [None]
